FAERS Safety Report 13368803 (Version 1)
Quarter: 2017Q1

REPORT INFORMATION
  Report Type: Spontaneous
  Country: US (occurrence: US)
  Receive Date: 20170324
  Receipt Date: 20170324
  Transmission Date: 20170429
  Serious: No
  Sender: FDA-Public Use
  Company Number: US-MALLINCKRODT-T201602291

PATIENT
  Age: 47 Year
  Sex: Female

DRUGS (25)
  1. SINGULAIR [Concomitant]
     Active Substance: MONTELUKAST SODIUM
     Dosage: 10 MG, ONCE A DAY
     Dates: start: 200802
  2. INTEGRA PLUS [Concomitant]
     Active Substance: ASCORBIC ACID\BIOTIN\CALCIUM PANTOTHENATE\FERROUS ASPARTO GLYCINATE\FERROUS FUMARATE\FOLIC ACID\NIACIN\PYRIDOXINE HYDROCHLORIDE\RIBOFLAVIN\THIAMINE MONONITRATE
     Dosage: 125 MG/1 MG ONCE A DAY
     Dates: start: 200905
  3. OMEGA-3 ACIDS [Concomitant]
     Active Substance: OMEGA-3 FATTY ACIDS
     Dosage: 800-600 MG TWICE A DAY
     Dates: start: 201412
  4. ADDERALL [Concomitant]
     Active Substance: AMPHETAMINE ASPARTATE\AMPHETAMINE SULFATE\DEXTROAMPHETAMINE SACCHARATE\DEXTROAMPHETAMINE SULFATE
     Indication: ATTENTION DEFICIT/HYPERACTIVITY DISORDER
     Dosage: 60 MG TWICE A DAY
     Dates: start: 201002
  5. ALPHAGAN P [Concomitant]
     Active Substance: BRIMONIDINE TARTRATE
     Dosage: 0.1 %TWICE A DAY
     Dates: start: 201412
  6. SEROQUEL [Concomitant]
     Active Substance: QUETIAPINE FUMARATE
     Dosage: 100 MG ONCE A DAY
     Dates: start: 200802
  7. PRAVASTATIN. [Concomitant]
     Active Substance: PRAVASTATIN
     Dosage: 20 MG, ONCE A DAY
     Dates: start: 200905
  8. PROBIOTIC [Concomitant]
     Active Substance: PROBIOTICS NOS
     Dosage: ONCE A DAY
     Dates: start: 200905
  9. PROLENSA [Concomitant]
     Active Substance: BROMFENAC SODIUM
     Dosage: 0.07% TWICE A DAY
     Route: 047
     Dates: start: 201602
  10. LEVOBUNOLOL HYDROCHLORIDE. [Concomitant]
     Active Substance: LEVOBUNOLOL HYDROCHLORIDE
     Dosage: 0.5 % TWICE A DAY
     Route: 047
     Dates: start: 201602
  11. NOVOLOG [Concomitant]
     Active Substance: INSULIN ASPART
     Indication: DIABETES MELLITUS
     Dosage: DAILY
     Dates: start: 197107
  12. PREDNISOLONE. [Concomitant]
     Active Substance: PREDNISOLONE
     Dosage: TWICE A DAY (EYES DROPS)
     Route: 047
     Dates: start: 201412
  13. CALCIUM ACETATE. [Concomitant]
     Active Substance: CALCIUM ACETATE
     Dosage: 667 MG TWICE A DAY
     Dates: start: 200905
  14. ZOFRAN [Concomitant]
     Active Substance: ONDANSETRON HYDROCHLORIDE
     Dosage: 4 MG AS NEEDED
     Dates: start: 200802
  15. GLUCOSAMINE [Concomitant]
     Active Substance: GLUCOSAMINE
     Dosage: 1500 MCG TWICE A DAY
     Dates: start: 201412
  16. VICODIN [Concomitant]
     Active Substance: ACETAMINOPHEN\HYDROCODONE BITARTRATE
     Dosage: 7.5 MG-300 MG, TWICE A DAY
     Dates: start: 201212
  17. LISINOPRIL. [Concomitant]
     Active Substance: LISINOPRIL
     Dosage: 10 MG , ONCE A DAY
     Dates: start: 200905
  18. ZOLOFT [Concomitant]
     Active Substance: SERTRALINE HYDROCHLORIDE
     Dosage: 50 MG ONCE A DAY
     Dates: start: 201601
  19. RESTORIL [Suspect]
     Active Substance: TEMAZEPAM
     Indication: PRODUCT USED FOR UNKNOWN INDICATION
     Dosage: UNKNOWN
     Route: 065
  20. VITAMIN B12 [Concomitant]
     Active Substance: CYANOCOBALAMIN
     Dosage: 500 MCG ONCE A DAY
     Route: 060
     Dates: start: 200905
  21. XANAX [Concomitant]
     Active Substance: ALPRAZOLAM
     Dosage: 1 MG TWICE A DAY
     Dates: start: 201002
  22. SYNTHROID [Concomitant]
     Active Substance: LEVOTHYROXINE SODIUM
     Dosage: 75 MCG ONCE A DAY
     Dates: start: 201306
  23. METANX [Concomitant]
     Active Substance: LEVOMEFOLATE CALCIUM\METHYLCOBALAMIN\PYRIDOXAL PHOSPHATE ANHYDROUS
     Dosage: 3-35 MG TWICE A DAY
     Dates: start: 201503
  24. ERGOCALCIFEROL. [Concomitant]
     Active Substance: ERGOCALCIFEROL
     Dosage: 1000 IU/25 MCG, ONCE A DAY
     Dates: start: 200905
  25. ACETYLSALICYLIC ACID [Concomitant]
     Active Substance: ASPIRIN
     Dosage: 81 MG ONCE A DAY
     Dates: start: 201602

REACTIONS (11)
  - Somnolence [Unknown]
  - Infrequent bowel movements [Unknown]
  - Restlessness [Unknown]
  - Abnormal dreams [Unknown]
  - Disturbance in attention [Unknown]
  - Headache [Unknown]
  - Diarrhoea [Unknown]
  - Asthenia [Unknown]
  - Dizziness [Unknown]
  - Nausea [Unknown]
  - Coordination abnormal [Unknown]

NARRATIVE: CASE EVENT DATE: 20160315
